FAERS Safety Report 10653927 (Version 1)
Quarter: 2014Q4

REPORT INFORMATION
  Report Type: Spontaneous
  Country: RU (occurrence: RU)
  Receive Date: 20141216
  Receipt Date: 20141216
  Transmission Date: 20150529
  Serious: Yes (Other)
  Sender: FDA-Public Use
  Company Number: RU-UCBSA-2014021147

PATIENT
  Age: 60 Year
  Sex: Male

DRUGS (4)
  1. KEPPRA [Suspect]
     Active Substance: LEVETIRACETAM
     Indication: STATUS EPILEPTICUS
  2. KEPPRA [Suspect]
     Active Substance: LEVETIRACETAM
     Indication: OFF LABEL USE
  3. KEPPRA [Suspect]
     Active Substance: LEVETIRACETAM
     Indication: EPILEPSY
     Dosage: 1500 MG, 2X/DAY (BID)
     Route: 042
     Dates: start: 201411, end: 201411
  4. CONVULEX [Concomitant]
     Indication: EPILEPSY
     Dosage: UNK
     Route: 042
     Dates: start: 201411, end: 201411

REACTIONS (4)
  - Coma [Recovered/Resolved]
  - Status epilepticus [Unknown]
  - Off label use [Unknown]
  - Platelet count decreased [Unknown]

NARRATIVE: CASE EVENT DATE: 201411
